FAERS Safety Report 6241221-5 (Version None)
Quarter: 2009Q2

REPORT INFORMATION
  Report Type: 
  Country: None (occurrence: None)
  Receive Date: 20090619
  Receipt Date: 20090619
  Transmission Date: 20091009
  Serious: Yes (Hospitalization, Disabling)
  Sender: FDA-Public Use
  Company Number: None

PATIENT
  Age: 70 Year
  Sex: Male
  Weight: 88 kg

DRUGS (11)
  1. RITUXIMAB [Suspect]
     Indication: NON-HODGKIN'S LYMPHOMA STAGE IV
  2. R-CHOP [Concomitant]
  3. ZOCOR [Concomitant]
  4. VOLTAREN [Concomitant]
  5. PROTONIX/PREDNISONE [Concomitant]
  6. PERCOCET [Concomitant]
  7. METFORMIN [Concomitant]
  8. LISINOPRIL [Concomitant]
  9. HUMULIN N [Concomitant]
  10. ACTOS [Concomitant]
  11. AMBIEN [Concomitant]

REACTIONS (5)
  - ASTHENIA [None]
  - COUGH [None]
  - DYSPNOEA [None]
  - LUNG INFILTRATION [None]
  - PLEURAL EFFUSION [None]
